FAERS Safety Report 8521068-7 (Version None)
Quarter: 2012Q3

REPORT INFORMATION
  Report Type: 
  Country: None (occurrence: None)
  Receive Date: 20120719
  Receipt Date: 20120710
  Transmission Date: 20120928
  Serious: Yes (Other)
  Sender: FDA-Public Use
  Company Number: AU-JNJFOC-20120705841

PATIENT
  Sex: Male

DRUGS (1)
  1. MYLANTA P [Suspect]
     Indication: ANTACID THERAPY
     Route: 048

REACTIONS (1)
  - BREATH ALCOHOL TEST POSITIVE [None]
